FAERS Safety Report 25890439 (Version 1)
Quarter: 2025Q4

REPORT INFORMATION
  Report Type: Spontaneous
  Country: CA (occurrence: CA)
  Receive Date: 20251007
  Receipt Date: 20251007
  Transmission Date: 20260118
  Serious: Yes (Other)
  Sender: PFIZER
  Company Number: CA-PFIZER INC-202500197324

PATIENT
  Age: 46 Year
  Sex: Female

DRUGS (2)
  1. RUXIENCE [Suspect]
     Active Substance: RITUXIMAB-PVVR
     Indication: Multiple sclerosis
     Dosage: 1000 MG, 1 DOSE NOW THEN 1000MG IV EVERY 6 MONTHS
     Route: 042
     Dates: start: 20240507
  2. RUXIENCE [Suspect]
     Active Substance: RITUXIMAB-PVVR
     Dosage: 1000 MG, EVERY 6 MONTHS
     Route: 042
     Dates: start: 20250515

REACTIONS (2)
  - Ureteric obstruction [Unknown]
  - Ovarian mass [Unknown]

NARRATIVE: CASE EVENT DATE: 20250101
